FAERS Safety Report 6943675-5 (Version None)
Quarter: 2010Q3

REPORT INFORMATION
  Report Type: 
  Country: None (occurrence: None)
  Receive Date: 20100826
  Receipt Date: 20100818
  Transmission Date: 20110219
  Serious: Yes (Hospitalization)
  Sender: FDA-Public Use
  Company Number: A0877721A

PATIENT
  Age: 68 Year
  Sex: Female

DRUGS (3)
  1. NICORETTE (MINT) [Suspect]
     Indication: SMOKING CESSATION THERAPY
     Route: 002
     Dates: start: 20020101
  2. MESALAZINE [Concomitant]
     Dosage: 2TAB UNKNOWN
     Dates: start: 20050101
  3. AZATHIOPRINE [Concomitant]
     Dosage: 2TAB UNKNOWN
     Dates: start: 20090101

REACTIONS (2)
  - DRUG HYPERSENSITIVITY [None]
  - GASTRIC MUCOSAL LESION [None]
